FAERS Safety Report 9982249 (Version 1)
Quarter: 2014Q1

REPORT INFORMATION
  Report Type: Report from Study
  Country: US (occurrence: US)
  Receive Date: 20140307
  Receipt Date: 20140307
  Transmission Date: 20141002
  Serious: No
  Sender: FDA-Public Use
  Company Number: US-ABBVIE-13P-163-1177956-00

PATIENT
  Age: 54 Year
  Sex: Female

DRUGS (6)
  1. HUMIRA [Suspect]
     Indication: PSORIASIS
     Dates: start: 201212
  2. BENICAR [Concomitant]
     Indication: HYPERTENSION
     Dosage: 20/12.5MG
  3. POTASSIUM [Concomitant]
     Indication: BLOOD POTASSIUM DECREASED
  4. ATIVAN [Concomitant]
     Indication: SLEEP DISORDER
     Dosage: AT BEDTIME
  5. CLOBEX [Concomitant]
     Indication: PSORIASIS
  6. B-COMPLEX [Concomitant]
     Indication: VITAMIN SUPPLEMENTATION

REACTIONS (1)
  - Psoriasis [Not Recovered/Not Resolved]
